FAERS Safety Report 8343985-3 (Version None)
Quarter: 2012Q2

REPORT INFORMATION
  Report Type: 
  Country: None (occurrence: None)
  Receive Date: 20120503
  Receipt Date: 20120423
  Transmission Date: 20120825
  Serious: Yes (Life-Threatening, Hospitalization)
  Sender: FDA-Public Use
  Company Number: ACO_29394_2012

PATIENT
  Age: 33 Year
  Sex: Female

DRUGS (7)
  1. FAMPYRA (DALFAMPRIDINE) TABLET, 10MG [Suspect]
     Indication: MULTIPLE SCLEROSIS
     Dosage: 10 MG, BID, ORAL
     Route: 048
     Dates: start: 20111112, end: 20111119
  2. BACLOFEN [Concomitant]
  3. SPASMEX (TROSPIUM CHLORIDE) [Concomitant]
  4. AMITIPTYLINE (AMITRIPTYLINE HYDROCHLORIDE) [Concomitant]
  5. BETAFERON [Concomitant]
  6. AVONEX (INTERFERON BET-1A) [Concomitant]
  7. MITOXANTRONE [Concomitant]

REACTIONS (6)
  - FALL [None]
  - COMA [None]
  - INTRACRANIAL VENOUS SINUS THROMBOSIS [None]
  - PARTIAL SEIZURES [None]
  - EPILEPSY [None]
  - QUADRIPLEGIA [None]
